FAERS Safety Report 14492594 (Version 1)
Quarter: 2018Q1

REPORT INFORMATION
  Report Type: Spontaneous
  Country: US (occurrence: US)
  Receive Date: 20180206
  Receipt Date: 20180206
  Transmission Date: 20180509
  Serious: No
  Sender: FDA-Public Use
  Company Number: US-AMNEAL PHARMACEUTICALS-2017AMN01046

PATIENT
  Sex: Female

DRUGS (2)
  1. DIPHENOXYLATE/ATROPIN [Concomitant]
     Indication: IRRITABLE BOWEL SYNDROME
     Dosage: 1 TABLETS, 1X/DAY
     Route: 065
     Dates: start: 196901
  2. PANTOPRAZOLE SODIUM. [Suspect]
     Active Substance: PANTOPRAZOLE SODIUM
     Indication: HIATUS HERNIA
     Dosage: 40 MG, 1X/DAY
     Route: 065
     Dates: start: 201703

REACTIONS (1)
  - Drug ineffective [Unknown]
